FAERS Safety Report 7277318-0 (Version None)
Quarter: 2011Q1

REPORT INFORMATION
  Report Type: 
  Country: None (occurrence: None)
  Receive Date: 20110131
  Receipt Date: 20110118
  Transmission Date: 20110831
  Serious: Yes (Death)
  Sender: FDA-Public Use
  Company Number: B0696306A

PATIENT
  Age: 53 Year
  Sex: Female

DRUGS (7)
  1. FOSCARNET SODIUM [Suspect]
  2. RADIOTHERAPY (FORMULATION UNKNOWN) (RADIOTHERAPY) [Suspect]
     Indication: BONE MARROW TRANSPLANT
  3. TACROLIMUS [Suspect]
     Indication: PROPHYLAXIS AGAINST GRAFT VERSUS HOST DISEASE
  4. METHOTREXATE [Suspect]
     Indication: PROPHYLAXIS AGAINST GRAFT VERSUS HOST DISEASE
  5. FLUDARABINE PHOSPHATE [Suspect]
     Indication: BONE MARROW TRANSPLANT
  6. MELPHALAN (FORMULATION UNKNOWN) (GENERIC) (MELPHALAN) [Suspect]
     Indication: BONE MARROW TRANSPLANT
  7. METHYLPREDNISOLONE [Suspect]

REACTIONS (11)
  - ENCEPHALITIS CYTOMEGALOVIRUS [None]
  - DRUG RESISTANCE [None]
  - CEREBRAL ATROPHY [None]
  - ENCEPHALITIS HERPES [None]
  - GENERAL PHYSICAL HEALTH DETERIORATION [None]
  - LEUKOENCEPHALOPATHY [None]
  - HEPATIC FUNCTION ABNORMAL [None]
  - TREATMENT FAILURE [None]
  - ACUTE GRAFT VERSUS HOST DISEASE IN INTESTINE [None]
  - ROSEOLOVIRUS TEST POSITIVE [None]
  - CYTOMEGALOVIRUS TEST POSITIVE [None]
